FAERS Safety Report 21180545 (Version 2)
Quarter: 2022Q3

REPORT INFORMATION
  Report Type: Spontaneous
  Country: US (occurrence: US)
  Receive Date: 20220806
  Receipt Date: 20220810
  Transmission Date: 20221027
  Serious: No
  Sender: FDA-Public Use
  Company Number: US-SA-SAC20220727000310

PATIENT
  Age: 16 Year
  Sex: Female

DRUGS (13)
  1. DUPIXENT [Suspect]
     Active Substance: DUPILUMAB
     Indication: Dermatitis atopic
     Dosage: 200 MG, QOW
     Route: 058
     Dates: start: 20210202
  2. ALBUTEROL SULFATE [Concomitant]
     Active Substance: ALBUTEROL SULFATE
  3. CLOBETASOL [Concomitant]
     Active Substance: CLOBETASOL
  4. DESONIDE [Concomitant]
     Active Substance: DESONIDE
  5. FLOVENT HFA [Concomitant]
     Active Substance: FLUTICASONE PROPIONATE
  6. FLUCONAZOLE [Concomitant]
     Active Substance: FLUCONAZOLE
  7. MONTELUKAST SODIUM [Concomitant]
     Active Substance: MONTELUKAST SODIUM
  8. PREDNISONE [Concomitant]
     Active Substance: PREDNISONE
  9. PROMETHAZINE [Concomitant]
     Active Substance: PROMETHAZINE HYDROCHLORIDE
  10. TRIAMCINOLONE ACETONIDE [Concomitant]
     Active Substance: TRIAMCINOLONE ACETONIDE
  11. HYDROXYZINE HYDROCHLORIDE [Concomitant]
     Active Substance: HYDROXYZINE HYDROCHLORIDE
     Dosage: UNK
  12. PROMETHAZINE DM [Concomitant]
     Active Substance: DEXTROMETHORPHAN HYDROBROMIDE\PROMETHAZINE HYDROCHLORIDE
  13. AUVI-Q [Concomitant]
     Active Substance: EPINEPHRINE

REACTIONS (4)
  - Rash [Recovering/Resolving]
  - Pain [Recovering/Resolving]
  - Discomfort [Recovering/Resolving]
  - Dermatitis atopic [Recovering/Resolving]
